FAERS Safety Report 5033474-6 (Version None)
Quarter: 2006Q2

REPORT INFORMATION
  Report Type: 
  Country: None (occurrence: None)
  Receive Date: 20060621
  Receipt Date: 20060609
  Transmission Date: 20061013
  Serious: Yes (Other)
  Sender: FDA-Public Use
  Company Number: HQWYE974906JUN06

PATIENT
  Age: 7 Year
  Sex: Female
  Weight: 21.34 kg

DRUGS (11)
  1. RAPAMUNE [Suspect]
     Indication: HEART TRANSPLANT
     Dosage: SEE IMAGE
     Route: 048
     Dates: start: 20060325, end: 20060401
  2. RAPAMUNE [Suspect]
     Indication: HEART TRANSPLANT
     Dosage: SEE IMAGE
     Route: 048
     Dates: start: 20060508, end: 20060526
  3. RAPAMUNE [Suspect]
     Indication: HEART TRANSPLANT
     Dosage: SEE IMAGE
     Route: 048
     Dates: start: 20060527, end: 20060530
  4. BACTRIM [Concomitant]
  5. POLYVITAMIN (VITAMINS NOS) [Concomitant]
  6. REGLAN [Concomitant]
  7. MEPHYTON (PHYTOMENADIONE) [Concomitant]
  8. ASPIRIN [Concomitant]
  9. IRON (IRON) [Concomitant]
  10. PREVACID [Concomitant]
  11. PROGRAF [Concomitant]

REACTIONS (11)
  - ARTHRALGIA [None]
  - ARTHROPATHY [None]
  - ASTHENIA [None]
  - DRUG HYPERSENSITIVITY [None]
  - FREQUENT BOWEL MOVEMENTS [None]
  - INSOMNIA [None]
  - MUSCULAR WEAKNESS [None]
  - NAUSEA [None]
  - PYREXIA [None]
  - TREMOR [None]
  - VOMITING [None]
